FAERS Safety Report 5882684-4 (Version None)
Quarter: 2008Q3

REPORT INFORMATION
  Report Type: 
  Country: None (occurrence: None)
  Receive Date: 20080913
  Receipt Date: 20080812
  Transmission Date: 20090109
  Serious: No
  Sender: FDA-Public Use
  Company Number: US-ABBOTT-08P-163-0470530-00

PATIENT
  Sex: Male

DRUGS (3)
  1. HUMIRA [Suspect]
     Indication: PSORIASIS
     Route: 058
     Dates: start: 20080601, end: 20080812
  2. HUMIRA [Suspect]
     Route: 058
     Dates: start: 20080812
  3. CLOXACILLIN SODIUM [Concomitant]
     Indication: PSORIASIS
     Route: 061
     Dates: start: 20050101

REACTIONS (2)
  - DRUG INEFFECTIVE [None]
  - INJECTION SITE REACTION [None]
